FAERS Safety Report 9120140 (Version 1)
Quarter: 2013Q1

REPORT INFORMATION
  Report Type: Spontaneous
  Country: CA (occurrence: CA)
  Receive Date: 20130226
  Receipt Date: 20130226
  Transmission Date: 20140127
  Serious: Yes (Death)
  Sender: FDA-Public Use
  Company Number: CA-JNJFOC-20130211520

PATIENT
  Age: 10 Month
  Sex: Female

DRUGS (10)
  1. CLADRIBINE [Suspect]
     Indication: HISTIOCYTOSIS HAEMATOPHAGIC
     Route: 065
  2. CLADRIBINE [Suspect]
     Indication: LANGERHANS^ CELL HISTIOCYTOSIS
     Route: 065
  3. CYTARABINE [Suspect]
     Indication: HISTIOCYTOSIS HAEMATOPHAGIC
     Route: 065
  4. CYTARABINE [Suspect]
     Indication: LANGERHANS^ CELL HISTIOCYTOSIS
     Route: 065
  5. METHYLPREDNISOLONE [Suspect]
     Indication: HISTIOCYTOSIS HAEMATOPHAGIC
     Route: 065
  6. METHYLPREDNISOLONE [Suspect]
     Indication: LANGERHANS^ CELL HISTIOCYTOSIS
     Route: 065
  7. ETOPOSIDE [Suspect]
     Indication: HISTIOCYTOSIS HAEMATOPHAGIC
     Route: 065
  8. ETOPOSIDE [Suspect]
     Indication: LANGERHANS^ CELL HISTIOCYTOSIS
     Route: 065
  9. ALEMTUZUMAB [Suspect]
     Indication: HISTIOCYTOSIS HAEMATOPHAGIC
     Route: 065
  10. ALEMTUZUMAB [Suspect]
     Indication: LANGERHANS^ CELL HISTIOCYTOSIS
     Route: 065

REACTIONS (2)
  - Langerhans^ cell histiocytosis [Fatal]
  - Haemorrhage intracranial [Fatal]
